FAERS Safety Report 9103577 (Version 1)
Quarter: 2013Q1

REPORT INFORMATION
  Report Type: Spontaneous
  Country: ES (occurrence: ES)
  Receive Date: 20130219
  Receipt Date: 20130219
  Transmission Date: 20140127
  Serious: Yes (Other)
  Sender: FDA-Public Use
  Company Number: ES-GLAXOSMITHKLINE-B0867623A

PATIENT
  Age: 16 Year
  Sex: Female

DRUGS (1)
  1. DUAC [Suspect]
     Indication: PRODUCT USED FOR UNKNOWN INDICATION
     Route: 061
     Dates: start: 201212, end: 20121209

REACTIONS (4)
  - Paraesthesia [Recovered/Resolved]
  - Facial paresis [Not Recovered/Not Resolved]
  - Nausea [Recovered/Resolved]
  - Lip oedema [Recovered/Resolved]
